FAERS Safety Report 7600213-1 (Version None)
Quarter: 2011Q3

REPORT INFORMATION
  Report Type: 
  Country: None (occurrence: None)
  Receive Date: 20110711
  Receipt Date: 20110706
  Transmission Date: 20111222
  Serious: Yes (Hospitalization, Other)
  Sender: FDA-Public Use
  Company Number: US-BRISTOL-MYERS SQUIBB COMPANY-15878382

PATIENT
  Age: 84 Year
  Sex: Male

DRUGS (2)
  1. VOTRIENT [Suspect]
     Indication: RENAL CANCER
     Dosage: VOTRIENT 200MG TABLET.4TABLETS/DAY
     Route: 065
     Dates: start: 20110401
  2. COUMADIN [Suspect]
     Route: 065

REACTIONS (5)
  - RENAL CANCER [None]
  - HAEMATURIA [None]
  - BLADDER CANCER [None]
  - URINARY BLADDER HAEMORRHAGE [None]
  - PROSTATE CANCER [None]
